FAERS Safety Report 5578276-7 (Version None)
Quarter: 2007Q4

REPORT INFORMATION
  Report Type: 
  Country: None (occurrence: None)
  Receive Date: 20071231
  Receipt Date: 20071221
  Transmission Date: 20080405
  Serious: Yes (Death)
  Sender: FDA-Public Use
  Company Number: DK-PFIZER INC-2007107521

PATIENT
  Sex: Female
  Weight: 58 kg

DRUGS (9)
  1. SILDENAFIL (PAH) [Suspect]
     Indication: PULMONARY HYPERTENSION
     Route: 048
     Dates: start: 20071126, end: 20071127
  2. FURIX [Concomitant]
     Indication: DIURETIC THERAPY
     Dosage: DAILY DOSE:80MG-TEXT:DAILY
     Route: 048
  3. SPIRONOLACTONE [Concomitant]
     Indication: DIURETIC THERAPY
     Route: 048
  4. DIGOXIN [Concomitant]
     Indication: CARDIAC FAILURE
     Dosage: DAILY DOSE:125MG-TEXT:DAILY
     Route: 048
  5. INSULATARD [Concomitant]
     Indication: DIABETES MELLITUS
     Route: 058
  6. ALLOPURINOL [Concomitant]
     Indication: GOUTY ARTHRITIS
     Dosage: DAILY DOSE:300MG-TEXT:DAILY
     Route: 048
  7. SIMVASTATIN [Concomitant]
     Indication: HYPERCHOLESTEROLAEMIA
     Dosage: DAILY DOSE:40MG-TEXT:DAILY
     Route: 048
  8. SYMBICORT [Concomitant]
     Indication: CHRONIC OBSTRUCTIVE PULMONARY DISEASE
     Route: 055
  9. ALENDRONIC ACID [Concomitant]
     Indication: OSTEOPOROSIS
     Dosage: DAILY DOSE:70MG-TEXT:DAILY

REACTIONS (2)
  - CHRONIC RESPIRATORY FAILURE [None]
  - DYSPNOEA [None]
